FAERS Safety Report 17014811 (Version 3)
Quarter: 2020Q1

REPORT INFORMATION
  Report Type: Spontaneous
  Country: BR (occurrence: BR)
  Receive Date: 20191111
  Receipt Date: 20200117
  Transmission Date: 20200409
  Serious: Yes (Hospitalization)
  Sender: FDA-Public Use
  Company Number: BR-GLAXOSMITHKLINE-BR2019AMR200682

PATIENT
  Sex: Female

DRUGS (1)
  1. ZINNAT [Suspect]
     Active Substance: CEFUROXIME
     Indication: SINUSITIS BACTERIAL
     Dosage: UNK

REACTIONS (7)
  - Blister [Unknown]
  - Incorrect product administration duration [Unknown]
  - Product complaint [Unknown]
  - Condition aggravated [Unknown]
  - Rash [Unknown]
  - Product prescribing issue [Unknown]
  - Drug ineffective [Unknown]
